FAERS Safety Report 6634020-3 (Version None)
Quarter: 2010Q1

REPORT INFORMATION
  Report Type: 
  Country: None (occurrence: None)
  Receive Date: 20100315
  Receipt Date: 20100304
  Transmission Date: 20100710
  Serious: Yes (Hospitalization, Other)
  Sender: FDA-Public Use
  Company Number: PHHY2010DE06392

PATIENT
  Sex: Female
  Weight: 68 kg

DRUGS (10)
  1. ALISKIREN ALI+ [Suspect]
     Indication: HYPERTENSION
     Dosage: 150 MG, QD
     Route: 048
     Dates: start: 20080403, end: 20081031
  2. ALISKIREN ALI+ [Suspect]
     Dosage: 300 MG, QD
     Route: 048
     Dates: start: 20081031, end: 20081222
  3. BIPRETERAX [Suspect]
     Dosage: UNK
     Dates: end: 20081216
  4. AMLODIPINE [Concomitant]
     Dosage: UNK
     Dates: end: 20090109
  5. METOHEXAL [Concomitant]
  6. SIFROL [Concomitant]
  7. FENOFIBRAT [Concomitant]
  8. ALPHA-RECEPTOR BLOCKER [Concomitant]
     Dosage: UNK
     Dates: start: 20090710
  9. OPIPRAMOL [Concomitant]
     Indication: DEPRESSION
     Dosage: 100 MG PER DAY
     Route: 048
     Dates: start: 20080313, end: 20090112
  10. CITALOPRAM HYDROBROMIDE [Concomitant]
     Indication: DEPRESSION
     Dosage: 20 MG PER DAY
     Route: 048
     Dates: start: 20090112

REACTIONS (3)
  - AUTONOMIC NERVOUS SYSTEM IMBALANCE [None]
  - HEART DISEASE CONGENITAL [None]
  - HYPERTENSIVE CRISIS [None]
